FAERS Safety Report 8583608-1 (Version None)
Quarter: 2012Q3

REPORT INFORMATION
  Report Type: 
  Country: None (occurrence: None)
  Receive Date: 20120809
  Receipt Date: 20120607
  Transmission Date: 20120928
  Serious: No
  Sender: FDA-Public Use
  Company Number: US-009507513-2012SP032973

PATIENT

DRUGS (8)
  1. LORATADINE [Suspect]
     Indication: THROAT IRRITATION
     Dosage: 10 MG, QD
     Route: 048
  2. VITAMINS (UNSPECIFIED) [Concomitant]
     Indication: PRODUCT USED FOR UNKNOWN INDICATION
     Dosage: UNK UNK, UNKNOWN
  3. TRIAMTERENE [Concomitant]
     Indication: OEDEMA PERIPHERAL
     Dosage: UNK UNK, UNKNOWN
  4. LORATADINE [Suspect]
     Indication: NASAL DISCOMFORT
  5. LORATADINE [Suspect]
     Indication: RHINORRHOEA
  6. PROPRANOLOL HYDROCHLORIDE [Concomitant]
     Indication: CARDIAC DISORDER
     Dosage: UNK UNK, UNKNOWN
  7. SYNTHROID [Concomitant]
     Indication: THYROID DISORDER
     Dosage: UNK UNK, UNKNOWN
  8. ASPIRIN [Concomitant]
     Indication: PRODUCT USED FOR UNKNOWN INDICATION
     Dosage: UNK UNK, UNKNOWN

REACTIONS (1)
  - NO THERAPEUTIC RESPONSE [None]
